FAERS Safety Report 10195998 (Version 1)
Quarter: 2014Q2

REPORT INFORMATION
  Report Type: Spontaneous
  Country: NL (occurrence: None)
  Receive Date: 20140521
  Receipt Date: 20140521
  Transmission Date: 20141212
  Serious: Yes (Other)
  Sender: FDA-Public Use
  Company Number: 2014AP003064

PATIENT
  Age: 54 Year
  Sex: Female

DRUGS (1)
  1. AZITHROMYCIN [Suspect]
     Indication: PRODUCT USED FOR UNKNOWN INDICATION
     Route: 048

REACTIONS (7)
  - Suicidal ideation [None]
  - Depression [None]
  - Personality change [None]
  - Tooth discolouration [None]
  - Nervousness [None]
  - Palpitations [None]
  - Suicidal ideation [None]
